FAERS Safety Report 12703469 (Version 2)
Quarter: 2016Q4

REPORT INFORMATION
  Report Type: Spontaneous
  Country: US (occurrence: US)
  Receive Date: 20160831
  Receipt Date: 20161020
  Transmission Date: 20170207
  Serious: Yes (Hospitalization)
  Sender: FDA-Public Use
  Company Number: US-B.I. PHARMACEUTICALS,INC./RIDGEFIELD-2016-BI-56154BP

PATIENT
  Age: 68 Year
  Sex: Female
  Weight: 59 kg

DRUGS (3)
  1. MOBIC [Suspect]
     Active Substance: MELOXICAM
     Indication: PAIN
     Route: 048
     Dates: start: 20150813, end: 20150910
  2. ISOVUE [Suspect]
     Active Substance: IOPAMIDOL
     Indication: SCAN WITH CONTRAST
     Dosage: STRENGTH: 370; DOSE PER APPLICATION: 100 CC
     Route: 042
     Dates: start: 20150901, end: 20150901
  3. CRIZOTINIB [Concomitant]
     Active Substance: CRIZOTINIB
     Indication: LUNG NEOPLASM MALIGNANT
     Route: 048
     Dates: start: 20150908

REACTIONS (1)
  - Acute kidney injury [Recovered/Resolved]

NARRATIVE: CASE EVENT DATE: 20150908
